FAERS Safety Report 8131842-7 (Version None)
Quarter: 2012Q1

REPORT INFORMATION
  Report Type: 
  Country: None (occurrence: None)
  Receive Date: 20120213
  Receipt Date: 20120209
  Transmission Date: 20120608
  Serious: Yes (Other)
  Sender: FDA-Public Use
  Company Number: US-PFIZER INC-2012036897

PATIENT
  Sex: Female
  Weight: 68.027 kg

DRUGS (9)
  1. TRAZODONE [Concomitant]
     Indication: PAIN
     Dosage: UNK
  2. FENTANYL [Concomitant]
     Indication: PAIN
     Dosage: UNK, AS NEEDED
  3. CHANTIX [Suspect]
     Indication: SMOKING CESSATION THERAPY
     Dosage: UNK
     Dates: start: 20080101
  4. DILAUDID [Concomitant]
     Indication: PAIN
     Dosage: UNK, AS NEEDED
  5. BACLOFEN [Concomitant]
     Indication: PAIN
     Dosage: UNK
     Route: 037
  6. SOMA [Concomitant]
     Indication: MUSCLE RELAXANT THERAPY
     Dosage: UNK
  7. CHANTIX [Suspect]
     Dosage: UNK
  8. SOMA [Concomitant]
     Indication: PAIN
  9. MORPHINE [Concomitant]
     Indication: PAIN
     Dosage: UNK

REACTIONS (5)
  - PAIN [None]
  - NERVE INJURY [None]
  - ABNORMAL DREAMS [None]
  - INSOMNIA [None]
  - FALL [None]
